FAERS Safety Report 6767342-6 (Version None)
Quarter: 2010Q2

REPORT INFORMATION
  Report Type: 
  Country: None (occurrence: None)
  Receive Date: 20100611
  Receipt Date: 20100611
  Transmission Date: 20101027
  Serious: Yes (Other)
  Sender: FDA-Public Use
  Company Number: None

PATIENT
  Age: 50 Month
  Weight: 95.2554 kg

DRUGS (1)
  1. HYDROMORPHONE NONE GIVEN ANY GENERIC? [Suspect]
     Indication: PAIN

REACTIONS (1)
  - NO ADVERSE EVENT [None]
